FAERS Safety Report 10194034 (Version 1)
Quarter: 2014Q2

REPORT INFORMATION
  Report Type: Spontaneous
  Country: US (occurrence: US)
  Receive Date: 20140524
  Receipt Date: 20140524
  Transmission Date: 20141212
  Serious: No
  Sender: FDA-Public Use
  Company Number: US-SANOFI-AVENTIS-2013SA051469

PATIENT
  Age: 79 Year
  Sex: Female

DRUGS (2)
  1. LANTUS SOLOSTAR [Suspect]
     Dosage: DOSE:46 UNIT(S)
     Dates: start: 20130412
  2. SOLOSTAR [Suspect]
     Dates: start: 20130412

REACTIONS (1)
  - Rash [Not Recovered/Not Resolved]
